FAERS Safety Report 11943766 (Version 1)
Quarter: 2016Q1

REPORT INFORMATION
  Report Type: Spontaneous
  Country: US (occurrence: US)
  Receive Date: 20160125
  Receipt Date: 20160125
  Transmission Date: 20160526
  Serious: No
  Sender: FDA-Public Use
  Company Number: US-UNITED THERAPEUTICS-UNT-2015-013523

PATIENT
  Age: 70 Year
  Sex: Female
  Weight: 66.67 kg

DRUGS (4)
  1. ADCIRCA [Concomitant]
     Active Substance: TADALAFIL
     Indication: PRODUCT USED FOR UNKNOWN INDICATION
  2. REMODULIN [Suspect]
     Active Substance: TREPROSTINIL
     Dosage: UNK
  3. REMODULIN [Suspect]
     Active Substance: TREPROSTINIL
     Indication: PULMONARY ARTERIAL HYPERTENSION
     Dosage: 0.030 ?G/KG, CONTINUING
     Route: 058
     Dates: start: 20140122
  4. REMODULIN [Suspect]
     Active Substance: TREPROSTINIL
     Dosage: UNK

REACTIONS (6)
  - Adverse event [Unknown]
  - Product quality issue [Unknown]
  - Infusion site discharge [Unknown]
  - Infusion site oedema [Unknown]
  - Infusion site erythema [Unknown]
  - Infusion site pain [Unknown]

NARRATIVE: CASE EVENT DATE: 201510
